FAERS Safety Report 4630621-2 (Version None)
Quarter: 2005Q2

REPORT INFORMATION
  Report Type: 
  Country: None (occurrence: None)
  Receive Date: 20050408
  Receipt Date: 20050330
  Transmission Date: 20051028
  Serious: Yes (Hospitalization)
  Sender: FDA-Public Use
  Company Number: US-BRISTOL-MYERS SQUIBB COMPANY-12915948

PATIENT
  Age: 76 Year
  Sex: Female

DRUGS (11)
  1. CISPLATIN [Suspect]
     Indication: CHEMOTHERAPY
     Route: 042
     Dates: start: 20040617
  2. FENTANYL [Concomitant]
     Indication: PAIN
     Route: 061
     Dates: start: 20040610
  3. MORPHINE SULFATE [Concomitant]
     Indication: PAIN
     Route: 048
     Dates: start: 20040610
  4. LANSOPRAZOLE [Concomitant]
     Indication: GASTROOESOPHAGEAL REFLUX DISEASE
     Route: 048
     Dates: start: 20040527
  5. DURAGESIC-100 [Concomitant]
  6. ROXANOL [Concomitant]
  7. PREVACID [Concomitant]
  8. PHENERGAN [Concomitant]
  9. LIPITOR [Concomitant]
  10. ASPIRIN [Concomitant]
  11. MS CONTIN [Concomitant]

REACTIONS (4)
  - ABDOMINAL PAIN [None]
  - DECREASED APPETITE [None]
  - NAUSEA [None]
  - VOMITING [None]
